FAERS Safety Report 6993742-5 (Version None)
Quarter: 2010Q3

REPORT INFORMATION
  Report Type: 
  Country: None (occurrence: None)
  Receive Date: 20100917
  Receipt Date: 20090721
  Transmission Date: 20110219
  Serious: Yes (Other)
  Sender: FDA-Public Use
  Company Number: US-ASTRAZENECA-2007UW05058

PATIENT
  Sex: Female

DRUGS (3)
  1. SEROQUEL [Suspect]
     Route: 048
     Dates: start: 20050226
  2. EFFEXOR XR [Concomitant]
     Dates: start: 20050226
  3. CLONAZEPAM [Concomitant]
     Dosage: ONE TABLET IN THE MORNING AND TWO AT NIGHT AS NEEDED
     Dates: start: 20050226

REACTIONS (3)
  - DIABETES MELLITUS [None]
  - DIABETIC KETOACIDOSIS [None]
  - PANCREATITIS [None]
